FAERS Safety Report 16295727 (Version 1)
Quarter: 2019Q2

REPORT INFORMATION
  Report Type: Spontaneous
  Country: US (occurrence: US)
  Receive Date: 20190509
  Receipt Date: 20190509
  Transmission Date: 20190711
  Serious: No
  Sender: FDA-Public Use
  Company Number: US-SA-2019SA123047

PATIENT
  Sex: Female

DRUGS (1)
  1. NASACORT ALLERGY 24HR [Suspect]
     Active Substance: TRIAMCINOLONE ACETONIDE
     Dosage: 3 TIMES IN THE MORNING, THEN USED IT ACCORDINGLY,2 SPRAYS IN EACH NOSTRIL
     Route: 045

REACTIONS (1)
  - Condition aggravated [Unknown]
